FAERS Safety Report 7442503-1 (Version None)
Quarter: 2011Q2

REPORT INFORMATION
  Report Type: 
  Country: None (occurrence: None)
  Receive Date: 20110428
  Receipt Date: 20110426
  Transmission Date: 20111010
  Serious: Yes (Death, Hospitalization)
  Sender: FDA-Public Use
  Company Number: CH-ROCHE-769145

PATIENT
  Sex: Male
  Weight: 77.5 kg

DRUGS (3)
  1. PEGINTERFERON ALFA-2A [Suspect]
     Route: 058
     Dates: start: 20101201, end: 20110406
  2. TELAPREVIR [Suspect]
     Route: 048
     Dates: start: 20101201, end: 20110222
  3. RIBAVIRIN [Suspect]
     Dosage: FREQUENCY: 3-0-3
     Route: 048
     Dates: start: 20101201, end: 20110412

REACTIONS (3)
  - ERYSIPELAS [None]
  - STAPHYLOCOCCAL SEPSIS [None]
  - DEATH [None]
